FAERS Safety Report 7573598-2 (Version None)
Quarter: 2011Q2

REPORT INFORMATION
  Report Type: 
  Country: None (occurrence: None)
  Receive Date: 20110627
  Receipt Date: 20110620
  Transmission Date: 20111010
  Serious: Yes (Other)
  Sender: FDA-Public Use
  Company Number: US-BRACCO-003619

PATIENT
  Sex: Female
  Weight: 77.3 kg

DRUGS (47)
  1. MULTIHANCE [Suspect]
     Indication: DIAGNOSTIC PROCEDURE
     Route: 065
     Dates: start: 20070517, end: 20070517
  2. METOPROLOL TARTRATE [Concomitant]
  3. ASPIRIN [Concomitant]
  4. CONTRAST MEDIA [Suspect]
     Dates: start: 20030207, end: 20030207
  5. CARDIZEM CD [Concomitant]
  6. NEPHROVITE [Concomitant]
  7. VENOFER [Concomitant]
  8. OPTIMARK [Suspect]
     Indication: DIAGNOSTIC PROCEDURE
     Route: 065
  9. DIGOXIN [Concomitant]
  10. CONTRAST MEDIA [Suspect]
     Dates: start: 20040810, end: 20040810
  11. CONTRAST MEDIA [Suspect]
     Dates: start: 20050222, end: 20050222
  12. CONTRAST MEDIA [Suspect]
     Dates: start: 20020801, end: 20020801
  13. COZAAR [Concomitant]
  14. PROHANCE [Suspect]
     Indication: DIAGNOSTIC PROCEDURE
     Route: 065
  15. MAGNEVIST [Suspect]
     Indication: DIAGNOSTIC PROCEDURE
     Route: 065
  16. EPOGEN [Concomitant]
  17. CONTRAST MEDIA [Suspect]
     Indication: ANGIOGRAM
     Route: 065
     Dates: start: 20070920, end: 20070920
  18. CONTRAST MEDIA [Suspect]
     Dates: start: 20060705, end: 20060705
  19. CONTRAST MEDIA [Suspect]
  20. DECADRON [Concomitant]
  21. MULTIHANCE [Suspect]
     Route: 065
     Dates: start: 20070920, end: 20070920
  22. CONTRAST MEDIA [Suspect]
     Dates: start: 20000920, end: 20000920
  23. NORVASC [Concomitant]
  24. LASIX [Concomitant]
  25. CATAPRES-TTS-1 [Concomitant]
  26. SIMVASTATIN [Concomitant]
  27. OMNISCAN [Suspect]
     Indication: DIAGNOSTIC PROCEDURE
     Route: 065
     Dates: start: 20050915, end: 20050915
  28. CONTRAST MEDIA [Suspect]
     Route: 065
     Dates: start: 20000919, end: 20000919
  29. CONTRAST MEDIA [Suspect]
     Dates: start: 20040506, end: 20040506
  30. CONTRAST MEDIA [Suspect]
  31. CONTRAST MEDIA [Suspect]
     Dates: start: 20030520, end: 20030520
  32. PHOSLO [Concomitant]
  33. COUMADIN [Concomitant]
  34. CARDURA [Concomitant]
  35. METOPROLOL SUCCINATE [Concomitant]
  36. ADVAIR DISKUS 100/50 [Concomitant]
  37. CONTRAST MEDIA [Suspect]
     Dates: start: 20030819, end: 20030819
  38. CONTRAST MEDIA [Suspect]
     Dates: start: 20050602, end: 20050602
  39. CONTRAST MEDIA [Suspect]
     Dates: start: 20050915, end: 20050915
  40. ZOCOR [Concomitant]
  41. PREDNISONE [Concomitant]
  42. CONTRAST MEDIA [Suspect]
     Indication: NUCLEAR MAGNETIC RESONANCE IMAGING ABDOMINAL
     Route: 065
     Dates: start: 20070517, end: 20070517
  43. CONTRAST MEDIA [Suspect]
     Indication: FISTULOGRAM
     Route: 065
     Dates: start: 20070208, end: 20070208
  44. CONTRAST MEDIA [Suspect]
     Indication: VENOGRAM
     Route: 065
     Dates: start: 20050915, end: 20050915
  45. NITROGLYCERIN [Concomitant]
  46. FERROUS SULFATE TAB [Concomitant]
  47. CONTRAST MEDIA [Suspect]
     Dates: start: 20011109, end: 20011109

REACTIONS (1)
  - NEPHROGENIC SYSTEMIC FIBROSIS [None]
